FAERS Safety Report 9871221 (Version 65)
Quarter: 2023Q1

REPORT INFORMATION
  Report Type: Report from Study
  Country: CA (occurrence: CA)
  Receive Date: 20140205
  Receipt Date: 20230322
  Transmission Date: 20230418
  Serious: Yes (Hospitalization, Other)
  Sender: FDA-Public Use
  Company Number: PHHY2011CA70045

PATIENT
  Age: 82 Year
  Sex: Female

DRUGS (26)
  1. SANDOSTATIN LAR DEPOT [Suspect]
     Active Substance: OCTREOTIDE ACETATE
     Indication: Pituitary tumour benign
     Dosage: 30 MG, QMO (EVERY FOUR WEEKS)
     Route: 030
     Dates: start: 20110804
  2. SANDOSTATIN LAR DEPOT [Suspect]
     Active Substance: OCTREOTIDE ACETATE
     Dosage: 30 MG, QMO (EVERY FOUR WEEKS)
     Route: 030
  3. SANDOSTATIN LAR DEPOT [Suspect]
     Active Substance: OCTREOTIDE ACETATE
     Dosage: 40 MG, QMO (EVERY FOUR WEEKS)
     Route: 030
  4. SANDOSTATIN LAR DEPOT [Suspect]
     Active Substance: OCTREOTIDE ACETATE
     Dosage: 30 MG, QMO (EVERY FOUR WEEKS)
     Route: 030
  5. SANDOSTATIN LAR DEPOT [Suspect]
     Active Substance: OCTREOTIDE ACETATE
     Dosage: 20 MG, Q4W
     Route: 030
     Dates: start: 20110804, end: 20220302
  6. SANDOSTATIN [Suspect]
     Active Substance: OCTREOTIDE ACETATE
     Indication: Pituitary tumour benign
     Dosage: 50 UG, TID
     Route: 058
     Dates: start: 20110727
  7. SANDOSTATIN [Suspect]
     Active Substance: OCTREOTIDE ACETATE
     Dosage: 50 UG, BID
     Route: 058
  8. SANDOSTATIN [Suspect]
     Active Substance: OCTREOTIDE ACETATE
     Dosage: 50 UG, TID
     Route: 058
  9. CALCIUM [Suspect]
     Active Substance: CALCIUM
     Indication: Product used for unknown indication
     Dosage: UNK
     Route: 065
  10. PERINDOPRIL [Suspect]
     Active Substance: PERINDOPRIL
     Indication: Product used for unknown indication
     Dosage: UNK
     Route: 065
  11. ACEBUTOLOL [Concomitant]
     Active Substance: ACEBUTOLOL
     Indication: Product used for unknown indication
     Dosage: 200 MG
     Route: 065
  12. ACEBUTOLOL [Concomitant]
     Active Substance: ACEBUTOLOL
     Dosage: 100 MG
     Route: 065
  13. AVAPRO [Concomitant]
     Active Substance: IRBESARTAN
     Indication: Product used for unknown indication
     Dosage: 150 MG, QD (IN THE MORNING) (BETA BLOCKER)
     Route: 065
  14. ASPIRIN [Concomitant]
     Active Substance: ASPIRIN
     Indication: Product used for unknown indication
     Dosage: UNK
     Route: 065
  15. TAPAZOL [Concomitant]
     Indication: Product used for unknown indication
     Dosage: UNK
     Route: 065
  16. METFORMIN HYDROCHLORIDE [Concomitant]
     Active Substance: METFORMIN HYDROCHLORIDE
     Indication: Product used for unknown indication
     Dosage: UNK
     Route: 065
  17. LIPITOR [Concomitant]
     Active Substance: ATORVASTATIN CALCIUM
     Indication: Product used for unknown indication
     Dosage: UNK
     Route: 065
  18. DOPAMINE [Concomitant]
     Active Substance: DOPAMINE HYDROCHLORIDE
     Indication: Product used for unknown indication
     Dosage: UNK
     Route: 065
  19. ELIQUIS [Concomitant]
     Active Substance: APIXABAN
     Indication: Product used for unknown indication
     Dosage: 1 DOSAGE FORM, BID (ONE TABLET TWICE A DAY)
     Route: 065
  20. GLICLAZIDE [Concomitant]
     Active Substance: GLICLAZIDE
     Indication: Diabetes mellitus
     Dosage: 30 MG, QD
     Route: 065
     Dates: start: 2016
  21. LINAGLIPTIN [Concomitant]
     Active Substance: LINAGLIPTIN
     Indication: Hyperglycaemia
     Dosage: 5 MG, QD
     Route: 065
  22. REPAGLINIDE [Concomitant]
     Active Substance: REPAGLINIDE
     Indication: Hyperglycaemia
     Dosage: 2 MG, TID
     Route: 065
  23. REPAGLINIDE [Concomitant]
     Active Substance: REPAGLINIDE
     Dosage: 3 MG, TID
     Route: 065
     Dates: start: 20180503
  24. JARDIANCE [Concomitant]
     Active Substance: EMPAGLIFLOZIN
     Indication: Diabetes mellitus
     Dosage: 10 MG, QD
     Route: 065
     Dates: start: 2018
  25. INSULIN NOS [Concomitant]
     Active Substance: INSULIN NOS
     Indication: Diabetes mellitus
     Dosage: UNK
     Route: 065
  26. CALCITRIOL ODAN [Concomitant]
     Indication: Product used for unknown indication
     Dosage: 3 DOSAGE FORM, QW
     Route: 065

REACTIONS (50)
  - Labyrinthitis [Unknown]
  - Pulmonary embolism [Unknown]
  - Blood pressure diastolic decreased [Unknown]
  - Renal failure [Recovered/Resolved]
  - Blood pressure increased [Unknown]
  - Hyperkalaemia [Unknown]
  - Thrombosis [Unknown]
  - Bradycardia [Unknown]
  - Diarrhoea [Not Recovered/Not Resolved]
  - Foot deformity [Recovering/Resolving]
  - Feeling hot [Not Recovered/Not Resolved]
  - Erythema [Not Recovered/Not Resolved]
  - Skin sensitisation [Recovering/Resolving]
  - Osteoarthritis [Unknown]
  - Arthralgia [Unknown]
  - Pain [Unknown]
  - Oedema peripheral [Recovered/Resolved]
  - Sputum discoloured [Unknown]
  - Body temperature decreased [Unknown]
  - Insomnia [Not Recovered/Not Resolved]
  - Limb injury [Recovering/Resolving]
  - Nasopharyngitis [Unknown]
  - Sinusitis [Unknown]
  - Gait disturbance [Unknown]
  - Ocular hyperaemia [Unknown]
  - Anaemia [Unknown]
  - Gout [Unknown]
  - Herpes zoster [Unknown]
  - Myalgia [Unknown]
  - Blood iron decreased [Unknown]
  - Epistaxis [Unknown]
  - General physical health deterioration [Unknown]
  - Fall [Unknown]
  - Productive cough [Recovered/Resolved]
  - Influenza [Recovered/Resolved]
  - Pyrexia [Unknown]
  - Sciatica [Unknown]
  - Trigeminal neuralgia [Recovering/Resolving]
  - Blood pressure decreased [Unknown]
  - Fatigue [Unknown]
  - Dizziness [Recovering/Resolving]
  - Dyspnoea [Unknown]
  - Asthenia [Unknown]
  - Blood pressure systolic increased [Unknown]
  - Malaise [Unknown]
  - Visual impairment [Unknown]
  - Stress [Unknown]
  - Dyskinesia [Unknown]
  - Needle issue [Unknown]
  - Injection site erythema [Unknown]

NARRATIVE: CASE EVENT DATE: 20130101
